FAERS Safety Report 7635583-1 (Version None)
Quarter: 2011Q3

REPORT INFORMATION
  Report Type: 
  Country: None (occurrence: None)
  Receive Date: 20110726
  Receipt Date: 20110712
  Transmission Date: 20111222
  Serious: Yes (Hospitalization, Other)
  Sender: FDA-Public Use
  Company Number: PHHY2011KR62150

PATIENT

DRUGS (2)
  1. TEGRETOL-XR [Suspect]
     Dosage: 0.5 DF, BID
     Route: 048
     Dates: start: 20091204
  2. INTERFERON BETA-1B [Concomitant]
     Indication: MULTIPLE SCLEROSIS
     Dosage: UNK UKN, UNK
     Dates: start: 20090928

REACTIONS (3)
  - BALANCE DISORDER [None]
  - DRUG ERUPTION [None]
  - MULTIPLE SCLEROSIS [None]
